FAERS Safety Report 6786711-1 (Version None)
Quarter: 2010Q2

REPORT INFORMATION
  Report Type: 
  Country: None (occurrence: None)
  Receive Date: 20100623
  Receipt Date: 20100611
  Transmission Date: 20101027
  Serious: Yes (Hospitalization, Other)
  Sender: FDA-Public Use
  Company Number: DE-BAYER-201028882GPV

PATIENT
  Age: 99 Year
  Sex: Male

DRUGS (2)
  1. ULTRAVIST 300 [Suspect]
     Indication: DRUG USE FOR UNKNOWN INDICATION
  2. BARILUX CT [Concomitant]

REACTIONS (1)
  - DIARRHOEA HAEMORRHAGIC [None]
